FAERS Safety Report 20864601 (Version 1)
Quarter: 2022Q2

REPORT INFORMATION
  Report Type: Spontaneous
  Country: US (occurrence: US)
  Receive Date: 20220524
  Receipt Date: 20220524
  Transmission Date: 20220721
  Serious: No
  Sender: FDA-Public Use
  Company Number: US-ORGANON-O2205USA000957

PATIENT
  Age: 8 Year
  Sex: Female

DRUGS (11)
  1. ZOCOR [Suspect]
     Active Substance: SIMVASTATIN
     Indication: Hypercholesterolaemia
     Dosage: 10 MILLIGRAM DAILY
     Route: 048
  2. PREDNISONE [Concomitant]
     Active Substance: PREDNISONE
     Dosage: 60 MG/METER SQAURE/DAY
  3. PREDNISONE [Concomitant]
     Active Substance: PREDNISONE
     Dosage: 40 MG/METER SQAURE/DAY
  4. PREDNISONE [Concomitant]
     Active Substance: PREDNISONE
     Dosage: 20 MILLIGRAM DAILY
  5. ALBUMIN HUMAN [Concomitant]
     Active Substance: ALBUMIN HUMAN
  6. FUROSEMIDE\POTASSIUM CHLORIDE [Concomitant]
     Active Substance: FUROSEMIDE\POTASSIUM CHLORIDE
  7. LISINOPRIL [Concomitant]
     Active Substance: LISINOPRIL
     Dosage: 5 MILLIGRAM DAILY
  8. MYCOPHENOLIC ACID [Concomitant]
     Active Substance: MYCOPHENOLIC ACID
     Dosage: 300 MG/METER SQUARE/DAY
  9. MYCOPHENOLIC ACID [Concomitant]
     Active Substance: MYCOPHENOLIC ACID
     Dosage: 600 MG/METER SQUARE/DAY
  10. RITUXIMAB [Concomitant]
     Active Substance: RITUXIMAB
     Dosage: 375 MG/M2/DOSE FOR 2 DOSES GIVEN 14 DAYS APART
  11. RITUXIMAB [Concomitant]
     Active Substance: RITUXIMAB
     Dosage: 2 MORE DOSES

REACTIONS (1)
  - Drug ineffective [Unknown]
